FAERS Safety Report 4494837-0 (Version None)
Quarter: 2004Q4

REPORT INFORMATION
  Report Type: 
  Country: None (occurrence: None)
  Receive Date: 20041103
  Receipt Date: 20041027
  Transmission Date: 20050328
  Serious: Yes (Hospitalization)
  Sender: FDA-Public Use
  Company Number: 25498

PATIENT
  Age: 68 Year
  Sex: Male

DRUGS (3)
  1. FLECAINIDE ACETATE [Suspect]
     Indication: ATRIAL FIBRILLATION
     Dosage: 100 MG (100 MG, 1 IN 1 DAY(S)) ORAL
     Route: 048
     Dates: end: 20041004
  2. DIAMICRON (GLICLAZIDE) [Concomitant]
  3. ASPIRIN [Concomitant]

REACTIONS (18)
  - ATRIOVENTRICULAR EXTRASYSTOLES [None]
  - BLOOD BICARBONATE DECREASED [None]
  - CIRCULATORY COLLAPSE [None]
  - DILATATION VENTRICULAR [None]
  - ELECTROCARDIOGRAM QRS COMPLEX PROLONGED [None]
  - FALL [None]
  - GAMMA-GLUTAMYLTRANSFERASE INCREASED [None]
  - HYPERTENSION [None]
  - LABORATORY TEST ABNORMAL [None]
  - LOSS OF CONSCIOUSNESS [None]
  - MITRAL VALVE INCOMPETENCE [None]
  - PULSE ABNORMAL [None]
  - SUPRAVENTRICULAR EXTRASYSTOLES [None]
  - SYNCOPE [None]
  - VENTRICULAR ARRHYTHMIA [None]
  - VENTRICULAR EXTRASYSTOLES [None]
  - VENTRICULAR HYPOKINESIA [None]
  - VENTRICULAR TACHYCARDIA [None]
